FAERS Safety Report 25188765 (Version 1)
Quarter: 2025Q2

REPORT INFORMATION
  Report Type: Spontaneous
  Country: US (occurrence: US)
  Receive Date: 20250411
  Receipt Date: 20250411
  Transmission Date: 20250717
  Serious: No
  Sender: MADRIGAL PHARMACEUTICALS
  Company Number: US-MADRIGAL PHARMACEUTICALS, INC-2025REZ0198

PATIENT

DRUGS (1)
  1. REZDIFFRA [Suspect]
     Active Substance: RESMETIROM
     Indication: Metabolic dysfunction-associated steatohepatitis
     Dosage: 80 MILLIGRAM, QD
     Route: 048
     Dates: start: 202410

REACTIONS (4)
  - Proteinuria [Unknown]
  - Creatinine urine abnormal [Unknown]
  - Albumin urine present [Unknown]
  - Urine albumin/creatinine ratio abnormal [Unknown]

NARRATIVE: CASE EVENT DATE: 20241108
